FAERS Safety Report 12122290 (Version 2)
Quarter: 2017Q1

REPORT INFORMATION
  Report Type: Report from Study
  Country: VE (occurrence: VE)
  Receive Date: 20160226
  Receipt Date: 20170320
  Transmission Date: 20170428
  Serious: Yes (Hospitalization)
  Sender: FDA-Public Use
  Company Number: PHHY2016VE023261

PATIENT
  Sex: Male

DRUGS (2)
  1. EXJADE [Suspect]
     Active Substance: DEFERASIROX
     Indication: MYELODYSPLASTIC SYNDROME
     Dosage: 1000 MG, QD
     Route: 048
  2. EXJADE [Suspect]
     Active Substance: DEFERASIROX
     Dosage: 500 MG, QD (DAILY)
     Route: 048
     Dates: start: 20130218, end: 201611

REACTIONS (5)
  - Infection [Recovered/Resolved]
  - Lower limb fracture [Recovered/Resolved]
  - Haemoglobin decreased [Recovering/Resolving]
  - Fall [Recovered/Resolved]
  - Skin ulcer [Recovered/Resolved]
